FAERS Safety Report 12539827 (Version 1)
Quarter: 2016Q3

REPORT INFORMATION
  Report Type: Spontaneous
  Country: US (occurrence: None)
  Receive Date: 20160707
  Receipt Date: 20160707
  Transmission Date: 20161109
  Serious: Yes (Hospitalization)
  Sender: FDA-Public Use
  Company Number: None

PATIENT
  Age: 65 Year
  Sex: Female
  Weight: 127.01 kg

DRUGS (4)
  1. VALACYCLOVIR [Suspect]
     Active Substance: VALACYCLOVIR HYDROCHLORIDE
     Indication: GENITAL HERPES
     Dosage: VALACYCLOVIR 500 MG TABLET?1 TABLET EVERY DAY BY MOUTH
     Route: 048
     Dates: start: 20151111, end: 20160611
  2. LISINOPRIL HCTZ [Concomitant]
     Active Substance: HYDROCHLOROTHIAZIDE\LISINOPRIL
  3. MOMETASONE FUROATE TOPICAL [Concomitant]
  4. BAYER ASPIRIN [Concomitant]
     Active Substance: ASPIRIN

REACTIONS (11)
  - Fatigue [None]
  - Dyspnoea [None]
  - Mouth swelling [None]
  - Tinnitus [None]
  - Lip swelling [None]
  - Depression [None]
  - Chest pain [None]
  - Headache [None]
  - Swollen tongue [None]
  - Dizziness [None]
  - Swelling face [None]

NARRATIVE: CASE EVENT DATE: 201511
